FAERS Safety Report 14118522 (Version 3)
Quarter: 2018Q1

REPORT INFORMATION
  Report Type: Report from Study
  Country: US (occurrence: US)
  Receive Date: 20171024
  Receipt Date: 20180110
  Transmission Date: 20180508
  Serious: Yes (Other)
  Sender: FDA-Public Use
  Company Number: US-AMGEN-USASL2017158856

PATIENT
  Age: 37 Year
  Sex: Female

DRUGS (1)
  1. ENBREL [Suspect]
     Active Substance: ETANERCEPT
     Indication: RHEUMATOID ARTHRITIS
     Dosage: 50 MG, QWK
     Route: 065

REACTIONS (10)
  - Pain [Unknown]
  - Lip blister [Unknown]
  - Menstrual disorder [Unknown]
  - Drug effect decreased [Unknown]
  - Sinusitis [Not Recovered/Not Resolved]
  - Oral herpes [Unknown]
  - Injection site erythema [Unknown]
  - Contusion [Unknown]
  - Rheumatoid arthritis [Unknown]
  - Joint stiffness [Not Recovered/Not Resolved]

NARRATIVE: CASE EVENT DATE: 201710
